FAERS Safety Report 16885981 (Version 1)
Quarter: 2019Q4

REPORT INFORMATION
  Report Type: Spontaneous
  Country: US (occurrence: US)
  Receive Date: 20191004
  Receipt Date: 20191004
  Transmission Date: 20200122
  Serious: Yes (Hospitalization)
  Sender: FDA-Public Use
  Company Number: None

PATIENT
  Age: 37 Year
  Sex: Female
  Weight: 47.25 kg

DRUGS (3)
  1. ZANTAC [Suspect]
     Active Substance: RANITIDINE HYDROCHLORIDE
     Indication: DYSPEPSIA
     Dosage: ?          QUANTITY:24 TABLET(S);?
     Route: 048
  2. ZANTAC [Suspect]
     Active Substance: RANITIDINE HYDROCHLORIDE
     Indication: GASTROOESOPHAGEAL REFLUX DISEASE
     Dosage: ?          QUANTITY:24 TABLET(S);?
     Route: 048
  3. RANITIDINE. [Suspect]
     Active Substance: RANITIDINE

REACTIONS (11)
  - Dyspepsia [None]
  - Pyrexia [None]
  - Gastrointestinal disorder [None]
  - Infection [None]
  - Gastrooesophageal reflux disease [None]
  - Abdominal pain [None]
  - Nausea [None]
  - Headache [None]
  - Dehydration [None]
  - Vomiting [None]
  - Diarrhoea [None]

NARRATIVE: CASE EVENT DATE: 20190906
